FAERS Safety Report 4515397-1 (Version None)
Quarter: 2004Q4

REPORT INFORMATION
  Report Type: 
  Country: None (occurrence: None)
  Receive Date: 20041126
  Receipt Date: 20041111
  Transmission Date: 20050328
  Serious: Yes (Other)
  Sender: FDA-Public Use
  Company Number: 2004091914

PATIENT
  Sex: Female

DRUGS (1)
  1. DOXYCYCLINE (DOXYCYCLINE) [Suspect]
     Indication: ILL-DEFINED DISORDER
     Dosage: (100 MG, UNKNOWN), ORAL
     Route: 048

REACTIONS (2)
  - FOREIGN BODY ASPIRATION [None]
  - MEDICATION ERROR [None]
